FAERS Safety Report 5617318-7 (Version None)
Quarter: 2008Q1

REPORT INFORMATION
  Report Type: 
  Country: None (occurrence: None)
  Receive Date: 20080206
  Receipt Date: 20080206
  Transmission Date: 20080703
  Serious: Yes (Other)
  Sender: FDA-Public Use
  Company Number: None

PATIENT
  Age: 65 Year
  Sex: Male
  Weight: 91.6266 kg

DRUGS (2)
  1. CHANTIX [Suspect]
     Indication: SMOKING CESSATION THERAPY
     Dosage: STARTER PACK VARIES/GRADUATED PO
     Route: 048
     Dates: start: 20071101, end: 20071201
  2. CHANTIX [Suspect]
     Indication: SMOKING CESSATION THERAPY
     Dosage: REFILL CONTINUE 1 TAB TWO TIMES A PO
     Route: 048
     Dates: start: 20071201, end: 20080127

REACTIONS (3)
  - AGGRESSION [None]
  - INSOMNIA [None]
  - NIGHTMARE [None]
